FAERS Safety Report 7249599-0 (Version None)
Quarter: 2011Q1

REPORT INFORMATION
  Report Type: 
  Country: None (occurrence: None)
  Receive Date: 20110128
  Receipt Date: 20101216
  Transmission Date: 20110831
  Serious: Yes (Hospitalization, Other)
  Sender: FDA-Public Use
  Company Number: US-BAYER-201019726NA

PATIENT
  Sex: Female
  Weight: 76 kg

DRUGS (12)
  1. HEPARIN [Concomitant]
     Dosage: UNK
     Dates: start: 20071121
  2. AUGMENTIN '125' [Concomitant]
     Indication: BRONCHITIS
     Dosage: UNK
     Dates: start: 20071121
  3. MORPHINE [Concomitant]
     Dosage: UNK
     Dates: start: 20080226
  4. ZITHROMAX [Concomitant]
     Indication: PNEUMONIA
     Dosage: UNK
     Dates: start: 20071116
  5. PERCOCET [Concomitant]
     Indication: HEADACHE
     Dosage: UNK
     Dates: start: 20071121
  6. YAZ [Suspect]
     Indication: PRODUCT USED FOR UNKNOWN INDICATION
     Route: 048
  7. ZITHROMAX [Concomitant]
     Dosage: UNK
     Dates: start: 20071116
  8. DILAUDID [Concomitant]
     Indication: PAIN
     Dosage: UNK
     Dates: start: 20080226
  9. YASMIN [Suspect]
     Indication: PRODUCT USED FOR UNKNOWN INDICATION
     Route: 048
  10. COUMADIN [Concomitant]
  11. LOVENOX [Concomitant]
     Dosage: UNK
     Dates: start: 20071121
  12. PROVENTIL [Concomitant]
     Dosage: UNK
     Dates: start: 20071116

REACTIONS (7)
  - PULMONARY EMBOLISM [None]
  - CHEST PAIN [None]
  - PAIN IN EXTREMITY [None]
  - DYSPNOEA [None]
  - COUGH [None]
  - MUSCULOSKELETAL PAIN [None]
  - PNEUMONIA [None]
